FAERS Safety Report 21692161 (Version 2)
Quarter: 2022Q4

REPORT INFORMATION
  Report Type: Spontaneous
  Country: BE (occurrence: BE)
  Receive Date: 20221207
  Receipt Date: 20221222
  Transmission Date: 20230113
  Serious: Yes (Other)
  Sender: FDA-Public Use
  Company Number: BE-VALIDUS PHARMACEUTICALS LLC-BE-VDP-2022-015853

PATIENT

DRUGS (1)
  1. PENTOXIFYLLINE [Suspect]
     Active Substance: PENTOXIFYLLINE
     Indication: Maternal exposure during pregnancy
     Dosage: 400 MG, BID
     Route: 064
     Dates: start: 2014

REACTIONS (3)
  - Attention deficit hyperactivity disorder [Unknown]
  - Disinhibition [Unknown]
  - Emotional disorder [Unknown]
